FAERS Safety Report 11675531 (Version 8)
Quarter: 2016Q2

REPORT INFORMATION
  Report Type: Report from Study
  Country: CA (occurrence: CA)
  Receive Date: 20151028
  Receipt Date: 20160602
  Transmission Date: 20160815
  Serious: Yes (Hospitalization)
  Sender: FDA-Public Use
  Company Number: PHHY2015CA055730

PATIENT
  Age: 42 Year
  Sex: Female

DRUGS (2)
  1. SANDOSTATIN LAR DEPOT [Suspect]
     Active Substance: OCTREOTIDE ACETATE
     Indication: HEPATIC CANCER METASTATIC
     Dosage: 30 MG, QMO ONCE A MONTH
     Route: 030
     Dates: start: 20150405
  2. SANDOSTATIN [Suspect]
     Active Substance: OCTREOTIDE ACETATE
     Indication: HEPATIC CANCER METASTATIC
     Dosage: 100 UG, ONCE/SINGLE (TEST DOSE)
     Route: 058
     Dates: start: 20150326, end: 20150326

REACTIONS (10)
  - Wound [Recovering/Resolving]
  - Pain [Unknown]
  - Muscle spasms [Recovering/Resolving]
  - Postoperative abscess [Unknown]
  - Post procedural complication [Unknown]
  - Carcinoid tumour of the gastrointestinal tract [Unknown]
  - Abdominal pain [Unknown]
  - Hepatic pain [Recovering/Resolving]
  - Fatigue [Recovering/Resolving]
  - Body temperature increased [Unknown]

NARRATIVE: CASE EVENT DATE: 20150508
